FAERS Safety Report 14145537 (Version 2)
Quarter: 2017Q4

REPORT INFORMATION
  Report Type: Report from Study
  Country: US (occurrence: US)
  Receive Date: 20171031
  Receipt Date: 20171116
  Transmission Date: 20180321
  Serious: Yes (Death, Other)
  Sender: FDA-Public Use
  Company Number: US-GILEAD-2017-0301880

PATIENT
  Age: 69 Year
  Sex: Male
  Weight: 85 kg

DRUGS (18)
  1. ASPIRIN 81 [Concomitant]
     Active Substance: ASPIRIN
  2. IPRATROPIUM [Concomitant]
     Active Substance: IPRATROPIUM
  3. PRASUGREL. [Concomitant]
     Active Substance: PRASUGREL
  4. TIOTROPIUM [Concomitant]
     Active Substance: TIOTROPIUM
  5. ATORVASTATIN [Concomitant]
     Active Substance: ATORVASTATIN
  6. MULTIVITAMIN                       /00097801/ [Concomitant]
     Active Substance: VITAMINS
  7. ROFLUMILAST. [Concomitant]
     Active Substance: ROFLUMILAST
  8. PANTOPRAZOLE [Concomitant]
     Active Substance: PANTOPRAZOLE
  9. CYANOCOBALAMIN. [Concomitant]
     Active Substance: CYANOCOBALAMIN
  10. ROPINIROLE. [Concomitant]
     Active Substance: ROPINIROLE
  11. PREDNISONE. [Concomitant]
     Active Substance: PREDNISONE
  12. AMBRISENTAN [Suspect]
     Active Substance: AMBRISENTAN
     Indication: PULMONARY HYPERTENSION
     Dosage: 5 MG, QD
     Route: 048
     Dates: start: 20150205
  13. BUDESONIDE. [Concomitant]
     Active Substance: BUDESONIDE
  14. ZESTORETIC [Concomitant]
     Active Substance: HYDROCHLOROTHIAZIDE\LISINOPRIL
  15. SILDENAFIL. [Concomitant]
     Active Substance: SILDENAFIL
  16. ALBUTEROL                          /00139501/ [Concomitant]
     Active Substance: ALBUTEROL
  17. CALCIUM CARBONATE. [Concomitant]
     Active Substance: CALCIUM CARBONATE
  18. CHOLECALCIFEROL [Concomitant]
     Active Substance: CHOLECALCIFEROL

REACTIONS (1)
  - Death [Fatal]

NARRATIVE: CASE EVENT DATE: 20171012
